FAERS Safety Report 24082505 (Version 1)
Quarter: 2024Q3

REPORT INFORMATION
  Report Type: Spontaneous
  Country: PH (occurrence: PH)
  Receive Date: 20240712
  Receipt Date: 20240712
  Transmission Date: 20241016
  Serious: Yes (Hospitalization)
  Sender: MERCK
  Company Number: PH-009507513-2407PHL005381

PATIENT
  Age: 62 Year
  Sex: Female

DRUGS (4)
  1. SITAGLIPTIN PHOSPHATE [Suspect]
     Active Substance: SITAGLIPTIN PHOSPHATE
     Indication: Diabetes mellitus
     Dosage: 50 MILLIGRAM, QD
     Route: 048
     Dates: start: 20231208, end: 20231209
  2. VEZTENOR [Concomitant]
     Dosage: 5MG/50MG QD IN THE MORNING
     Dates: start: 20231208
  3. DILABLOC [Concomitant]
     Dosage: 1 TABLET DAILY
     Route: 048
     Dates: start: 20231208
  4. CLONIPRESS [Concomitant]
     Dosage: 1 TABLET
     Dates: start: 20231208

REACTIONS (3)
  - Hypoglycaemia [Unknown]
  - Hypertension [Unknown]
  - Nervousness [Unknown]

NARRATIVE: CASE EVENT DATE: 20231209
